FAERS Safety Report 25279471 (Version 3)
Quarter: 2025Q4

REPORT INFORMATION
  Report Type: Report from Study
  Country: US (occurrence: US)
  Receive Date: 20250507
  Receipt Date: 20251126
  Transmission Date: 20260117
  Serious: No
  Sender: SANDOZ
  Company Number: US-SANDOZ-SDZ2025US027278

PATIENT
  Sex: Male

DRUGS (6)
  1. OMNITROPE [Suspect]
     Active Substance: SOMATROPIN
     Dosage: UNK
     Route: 065
  2. OMNITROPE [Suspect]
     Active Substance: SOMATROPIN
     Dosage: UNK
     Route: 065
  3. OMNITROPE [Suspect]
     Active Substance: SOMATROPIN
     Indication: Product used for unknown indication
     Dosage: UNK (DOSING SIZE:0.7MG 1.5)
     Route: 065
  4. OMNITROPE [Suspect]
     Active Substance: SOMATROPIN
     Indication: Product used for unknown indication
     Dosage: UNK (DOSING SIZE:0.7MG 1.5)
     Route: 065
  5. OMNITROPE [Suspect]
     Active Substance: SOMATROPIN
     Dosage: UNK
     Route: 065
  6. OMNITROPE [Suspect]
     Active Substance: SOMATROPIN
     Dosage: UNK
     Route: 065

REACTIONS (4)
  - Circumstance or information capable of leading to medication error [Unknown]
  - Device issue [Unknown]
  - Device breakage [Unknown]
  - Device leakage [Unknown]
